FAERS Safety Report 16434808 (Version 1)
Quarter: 2019Q2

REPORT INFORMATION
  Report Type: Spontaneous
  Country: US (occurrence: US)
  Receive Date: 20190614
  Receipt Date: 20190614
  Transmission Date: 20190711
  Serious: No
  Sender: FDA-Public Use
  Company Number: US-JNJFOC-20190540649

PATIENT
  Sex: Female
  Weight: 64.86 kg

DRUGS (3)
  1. FENTANYL. [Suspect]
     Active Substance: FENTANYL
     Indication: PAIN
     Route: 062
     Dates: start: 2002
  2. IODINE. [Suspect]
     Active Substance: IODINE
     Indication: PAIN
     Route: 065
     Dates: start: 2002
  3. FENTANYL. [Suspect]
     Active Substance: FENTANYL
     Indication: PAIN
     Route: 062
     Dates: start: 2002

REACTIONS (3)
  - Blister [Unknown]
  - Application site exfoliation [Unknown]
  - Application site erythema [Unknown]
